FAERS Safety Report 16935618 (Version 2)
Quarter: 2019Q4

REPORT INFORMATION
  Report Type: Report from Study
  Country: US (occurrence: US)
  Receive Date: 20191018
  Receipt Date: 20191230
  Transmission Date: 20200122
  Serious: No
  Sender: FDA-Public Use
  Company Number: US-SA-2019SA289250

PATIENT
  Age: 37 Year
  Sex: Male

DRUGS (1)
  1. TERIFLUNOMIDE. [Suspect]
     Active Substance: TERIFLUNOMIDE
     Indication: MULTIPLE SCLEROSIS
     Dosage: 14 MG, QD
     Route: 048
     Dates: start: 20180202

REACTIONS (4)
  - Musculoskeletal stiffness [Not Recovered/Not Resolved]
  - Product dose omission [Unknown]
  - Product formulation issue [Unknown]
  - Road traffic accident [Unknown]
